FAERS Safety Report 4726849-3 (Version None)
Quarter: 2005Q3

REPORT INFORMATION
  Report Type: 
  Country: None (occurrence: None)
  Receive Date: 20050726
  Receipt Date: 20050714
  Transmission Date: 20060218
  Serious: Yes (Hospitalization, Other)
  Sender: FDA-Public Use
  Company Number: HQWYE225515JUL05

PATIENT
  Age: 16 Year
  Sex: Female

DRUGS (18)
  1. RAPAMUNE [Suspect]
     Indication: PROPHYLAXIS AGAINST TRANSPLANT REJECTION
     Dosage: 4 MG 1X PER 1 DAY; ORAL
     Route: 048
     Dates: start: 20040226, end: 20040729
  2. CLONIDINE [Concomitant]
  3. HYDRALAZINE [Concomitant]
  4. PROPRANOLOL [Concomitant]
  5. LOSARTAN [Concomitant]
  6. SODIUM NITROPRUSSIDE [Concomitant]
  7. CEFTAZIDIME [Concomitant]
  8. CLINDAMYCIN [Concomitant]
  9. GANCICLOVIR [Concomitant]
  10. NYSTATIN [Concomitant]
  11. ATORVASTATIN CALCIUM [Concomitant]
  12. CAPTOPRIL [Concomitant]
  13. CEPHALOTHIN [Concomitant]
  14. RANITIDINE [Concomitant]
  15. PRAZOSIN HCL [Concomitant]
  16. SALICYLIC ACID [Concomitant]
  17. CLONAZEPAM [Concomitant]
  18. FLUOXETINE [Concomitant]

REACTIONS (2)
  - GASTRITIS [None]
  - OESOPHAGITIS [None]
